FAERS Safety Report 8786432 (Version 1)
Quarter: 2012Q4

REPORT INFORMATION
  Report Type: 
  Country: BR (occurrence: BR)
  Receive Date: 20120914
  Receipt Date: 20120914
  Transmission Date: 20130627
  Serious: Yes (Other)
  Sender: FDA-Public Use
  Company Number: BR-PFIZER INC-2012224226

PATIENT
  Age: 15 Year
  Sex: Male
  Weight: 69 kg

DRUGS (2)
  1. TECTA [Suspect]
     Indication: GASTROOESOPHAGEAL REFLUX DISEASE
     Dosage: 40 mg, 1x/day
     Route: 048
     Dates: start: 20120814
  2. PARIET [Concomitant]
     Dosage: 1 DF, UNK
     Dates: start: 20120814

REACTIONS (5)
  - Eye swelling [Unknown]
  - Oesophageal pain [Unknown]
  - Burning sensation [Unknown]
  - Hyperhidrosis [Unknown]
  - Off label use [Unknown]
